FAERS Safety Report 15620420 (Version 3)
Quarter: 2019Q1

REPORT INFORMATION
  Report Type: Spontaneous
  Country: IT (occurrence: IT)
  Receive Date: 20181115
  Receipt Date: 20190201
  Transmission Date: 20190417
  Serious: Yes (Other)
  Sender: FDA-Public Use
  Company Number: IT-ROCHE-2213517

PATIENT
  Age: 34 Year
  Sex: Female

DRUGS (3)
  1. OCREVUS [Suspect]
     Active Substance: OCRELIZUMAB
     Indication: RELAPSING-REMITTING MULTIPLE SCLEROSIS
     Route: 042
     Dates: start: 20181030
  2. PREDNISONE. [Concomitant]
     Active Substance: PREDNISONE
     Route: 048
     Dates: start: 20181023, end: 20181028
  3. METILPREDNISOLONE [Concomitant]
     Active Substance: METHYLPREDNISOLONE
     Route: 042
     Dates: start: 20181030

REACTIONS (1)
  - Herpes zoster [Unknown]

NARRATIVE: CASE EVENT DATE: 20181101
